FAERS Safety Report 24096648 (Version 1)
Quarter: 2024Q3

REPORT INFORMATION
  Report Type: Spontaneous
  Country: US (occurrence: US)
  Receive Date: 20240716
  Receipt Date: 20240716
  Transmission Date: 20241016
  Serious: Yes (Death, Hospitalization, Other)
  Sender: MEDLEY PHARMACEUTICALS
  Company Number: US-MEDLEY-000012

PATIENT
  Age: 60 Year
  Sex: Female

DRUGS (9)
  1. BRIVARACETAM [Suspect]
     Active Substance: BRIVARACETAM
     Indication: Seizure
     Route: 065
  2. FOSPHENYTOIN [Suspect]
     Active Substance: FOSPHENYTOIN
     Indication: Seizure
     Route: 065
  3. VALPROIC ACID [Suspect]
     Active Substance: VALPROIC ACID
     Indication: Seizure
     Route: 065
  4. PHENOBARBITAL [Suspect]
     Active Substance: PHENOBARBITAL
     Indication: Seizure
     Route: 065
  5. MIDAZOLAM [Suspect]
     Active Substance: MIDAZOLAM
     Indication: Seizure
     Route: 065
  6. PROPOFOL [Suspect]
     Active Substance: PROPOFOL
     Indication: Seizure
     Route: 065
  7. CENOBAMATE [Suspect]
     Active Substance: CENOBAMATE
     Indication: Seizure
     Route: 065
  8. CLOBAZAM [Suspect]
     Active Substance: CLOBAZAM
     Indication: Seizure
     Route: 065
  9. LACOSAMIDE [Suspect]
     Active Substance: LACOSAMIDE
     Indication: Seizure
     Route: 065

REACTIONS (3)
  - New onset refractory status epilepticus [Unknown]
  - Drug ineffective [Unknown]
  - Cardiac arrest [Fatal]
